FAERS Safety Report 17375084 (Version 1)
Quarter: 2020Q1

REPORT INFORMATION
  Report Type: Spontaneous
  Country: US (occurrence: US)
  Receive Date: 20200204
  Receipt Date: 20200204
  Transmission Date: 20200409
  Serious: Yes (Other)
  Sender: FDA-Public Use
  Company Number: None

PATIENT
  Age: 61 Year
  Sex: Female
  Weight: 67.05 kg

DRUGS (9)
  1. FLUOROMETHOLONE. [Suspect]
     Active Substance: FLUOROMETHOLONE
     Indication: BLEPHARITIS
     Dosage: ?          QUANTITY:2 DROP(S);OTHER FREQUENCY:2XDAY-WK/1XDAY-WK;?
     Route: 047
     Dates: start: 20200107, end: 20200117
  2. VITAMIN B-12 INTRINSIC [Concomitant]
  3. FLUOROMETHOLONE. [Suspect]
     Active Substance: FLUOROMETHOLONE
     Indication: VIRAL INFECTION
     Dosage: ?          QUANTITY:2 DROP(S);OTHER FREQUENCY:2XDAY-WK/1XDAY-WK;?
     Route: 047
     Dates: start: 20200107, end: 20200117
  4. ASTELINE [Concomitant]
  5. VITAMIN D3 [Concomitant]
     Active Substance: CHOLECALCIFEROL
  6. VITAMIN B COMPLEX [Concomitant]
     Active Substance: CYANOCOBALAMIN\DEXPANTHENOL\NIACINAMIDE\PYRIDOXINE HYDROCHLORIDE\RIBOFLAVIN 5^-PHOSPHATE SODIUM\THIAMINE HYDROCHLORIDE\VITAMIN B COMPLEX
  7. MISC HERBAL FROM STANDARD PROCESS [Concomitant]
  8. FLONASE [Concomitant]
     Active Substance: FLUTICASONE PROPIONATE
  9. HERBAL TEAS [Concomitant]
     Active Substance: HERBALS

REACTIONS (7)
  - Contraindicated product administered [None]
  - Vitreous floaters [None]
  - Photopsia [None]
  - Contraindicated product prescribed [None]
  - Migraine [None]
  - Visual impairment [None]
  - Vision blurred [None]

NARRATIVE: CASE EVENT DATE: 20200117
